FAERS Safety Report 23187513 (Version 2)
Quarter: 2024Q1

REPORT INFORMATION
  Report Type: Spontaneous
  Country: IT (occurrence: IT)
  Receive Date: 20231115
  Receipt Date: 20240105
  Transmission Date: 20240410
  Serious: Yes (Hospitalization)
  Sender: FDA-Public Use
  Company Number: None

PATIENT
  Age: 32 Year
  Sex: Female

DRUGS (3)
  1. LINEZOLID [Suspect]
     Active Substance: LINEZOLID
     Indication: Infection
     Dosage: 600 MG EVERY 12 HOURS IV?INTRAVENOUS
     Route: 042
     Dates: start: 20231016, end: 20231018
  2. MEROPENEM [Suspect]
     Active Substance: MEROPENEM
     Indication: Infection
     Dosage: 2G X3/DAY IV?INTRAVENOUS
     Route: 042
     Dates: start: 20231014, end: 20231018
  3. VANCOMYCIN HYDROCHLORIDE [Suspect]
     Active Substance: VANCOMYCIN HYDROCHLORIDE
     Indication: Product used for unknown indication
     Dosage: 600 MG EVERY 12 HOURS IV?INTRAVENOUS
     Route: 042
     Dates: start: 20231014, end: 20231016

REACTIONS (3)
  - Skin reaction [Recovered/Resolved]
  - Gastrointestinal disorder [Recovered/Resolved]
  - Neck pain [Recovered/Resolved]

NARRATIVE: CASE EVENT DATE: 20231018
